FAERS Safety Report 8976030 (Version 1)
Quarter: 2012Q4

REPORT INFORMATION
  Report Type: 
  Country: DE (occurrence: DE)
  Receive Date: 20121219
  Receipt Date: 20121219
  Transmission Date: 20130627
  Serious: Yes (Other)
  Sender: FDA-Public Use
  Company Number: GXKR2012DE003845

PATIENT

DRUGS (2)
  1. RISPERIDONE [Suspect]
     Dosage: maternal dose: 3mg/day (1-0-2), probably throughout pregnancy
     Route: 064
  2. FOLIC ACID [Concomitant]
     Route: 064

REACTIONS (5)
  - Neonatal respiratory distress syndrome [Recovered/Resolved]
  - Feeding disorder neonatal [Recovered/Resolved]
  - Foetal growth restriction [Unknown]
  - Foetal heart rate deceleration [Unknown]
  - Foetal exposure during pregnancy [Unknown]
